FAERS Safety Report 20911526 (Version 2)
Quarter: 2022Q2

REPORT INFORMATION
  Report Type: Spontaneous
  Country: US (occurrence: US)
  Receive Date: 20220603
  Receipt Date: 20220606
  Transmission Date: 20220720
  Serious: No
  Sender: FDA-Public Use
  Company Number: US-BRISTOL-MYERS SQUIBB COMPANY-2022-036114

PATIENT
  Age: 75 Year
  Sex: Female

DRUGS (1)
  1. POMALYST [Suspect]
     Active Substance: POMALIDOMIDE
     Indication: Plasma cell myeloma
     Dosage: DOSE: 1 MILLIGRAM, FREQ: DAILY
     Route: 048
     Dates: start: 20220412, end: 20220602

REACTIONS (7)
  - Myalgia [Unknown]
  - Fatigue [Unknown]
  - Pain [Unknown]
  - Gait inability [Unknown]
  - Burning sensation [Unknown]
  - Peripheral swelling [Unknown]
  - Pain [Unknown]
